FAERS Safety Report 6783948-2 (Version None)
Quarter: 2010Q2

REPORT INFORMATION
  Report Type: 
  Country: None (occurrence: None)
  Receive Date: 20100622
  Receipt Date: 20090515
  Transmission Date: 20101027
  Serious: No
  Sender: FDA-Public Use
  Company Number: US-BRISTOL-MYERS SQUIBB COMPANY-14627046

PATIENT
  Sex: Female

DRUGS (3)
  1. SINEMET [Suspect]
  2. SEROQUEL [Suspect]
  3. EFFEXOR [Suspect]

REACTIONS (2)
  - HALLUCINATION [None]
  - THINKING ABNORMAL [None]
